FAERS Safety Report 18777594 (Version 1)
Quarter: 2021Q1

REPORT INFORMATION
  Report Type: Other
  Country: US (occurrence: US)
  Receive Date: 20210122
  Receipt Date: 20210122
  Transmission Date: 20210419
  Serious: Yes (Hospitalization)
  Sender: FDA-Public Use
  Company Number: US-ROCHE-2587996

PATIENT
  Age: 59 Year
  Sex: Female

DRUGS (5)
  1. AMIODARONE [Concomitant]
     Active Substance: AMIODARONE
  2. GANCICLOVIR. [Concomitant]
     Active Substance: GANCICLOVIR
     Indication: CYTOMEGALOVIRUS INFECTION REACTIVATION
  3. RITUXIMAB. [Suspect]
     Active Substance: RITUXIMAB
     Indication: GRANULOMATOSIS WITH POLYANGIITIS
     Route: 065
  4. HYDROCORTISONE. [Concomitant]
     Active Substance: HYDROCORTISONE
     Route: 042
  5. PREDNISONE. [Concomitant]
     Active Substance: PREDNISONE

REACTIONS (5)
  - Chills [Recovered/Resolved]
  - Nausea [Recovered/Resolved]
  - Escherichia bacteraemia [Unknown]
  - Septic shock [Unknown]
  - Hypogammaglobulinaemia [Unknown]
